FAERS Safety Report 11010231 (Version 3)
Quarter: 2015Q2

REPORT INFORMATION
  Report Type: Spontaneous
  Country: FR (occurrence: FR)
  Receive Date: 20150410
  Receipt Date: 20150519
  Transmission Date: 20150821
  Serious: Yes (Hospitalization, Other)
  Sender: FDA-Public Use
  Company Number: FR-AMGEN-FRASP2015034013

PATIENT
  Age: 56 Year
  Sex: Female

DRUGS (1)
  1. ENBREL [Suspect]
     Active Substance: ETANERCEPT
     Indication: RHEUMATOID ARTHRITIS
     Dosage: 50 MG, UNK
     Route: 065
     Dates: start: 201201, end: 2014

REACTIONS (12)
  - VIIth nerve paralysis [Recovering/Resolving]
  - Headache [Recovered/Resolved]
  - Nystagmus [Unknown]
  - Neuritis [Recovering/Resolving]
  - Lymphadenitis [Unknown]
  - Meningoradiculitis [Recovering/Resolving]
  - Neuralgia [Unknown]
  - Hyperacusis [Unknown]
  - Acute vestibular syndrome [Recovered/Resolved]
  - Vertigo [Unknown]
  - Dyskinesia [Not Recovered/Not Resolved]
  - Lymphadenopathy [Unknown]

NARRATIVE: CASE EVENT DATE: 2012
